FAERS Safety Report 10469834 (Version 1)
Quarter: 2014Q3

REPORT INFORMATION
  Report Type: Report from Study
  Country: ES (occurrence: ES)
  Receive Date: 20140923
  Receipt Date: 20140923
  Transmission Date: 20150326
  Serious: Yes (Other)
  Sender: FDA-Public Use
  Company Number: ES-SA-2014SA129234

PATIENT
  Age: 88 Year
  Sex: Male

DRUGS (1)
  1. SEGURIL [Suspect]
     Active Substance: FUROSEMIDE
     Indication: CARDIAC FAILURE
     Route: 048
     Dates: start: 2014, end: 20140720

REACTIONS (2)
  - Hyponatraemia [Recovering/Resolving]
  - Renal failure acute [Recovering/Resolving]

NARRATIVE: CASE EVENT DATE: 2014
